FAERS Safety Report 6125318-6 (Version None)
Quarter: 2009Q1

REPORT INFORMATION
  Report Type: 
  Country: None (occurrence: None)
  Receive Date: 20090320
  Receipt Date: 20090316
  Transmission Date: 20090719
  Serious: Yes (Other)
  Sender: FDA-Public Use
  Company Number: US-ASTRAZENECA-2009UW06731

PATIENT
  Age: 79 Year
  Sex: Female
  Weight: 70.3 kg

DRUGS (7)
  1. CRESTOR [Suspect]
     Route: 048
     Dates: start: 20080101
  2. DIGOXIN [Concomitant]
     Indication: ANGINA PECTORIS
  3. METOPROLOL TARTRATE [Concomitant]
     Indication: HYPERTENSION
     Route: 048
  4. PLAVIX [Concomitant]
     Indication: CARDIAC DISORDER
  5. TRANSDONE [Concomitant]
  6. BETHANECHOL [Concomitant]
     Indication: BLADDER DISORDER
  7. VITAMINS [Concomitant]
     Indication: MEDICAL DIET

REACTIONS (4)
  - BACK PAIN [None]
  - DRY EYE [None]
  - GAIT DISTURBANCE [None]
  - MOBILITY DECREASED [None]
